FAERS Safety Report 4744001-2 (Version None)
Quarter: 2005Q3

REPORT INFORMATION
  Report Type: 
  Country: None (occurrence: None)
  Receive Date: 20050809
  Receipt Date: 20050729
  Transmission Date: 20060218
  Serious: Yes (Life-Threatening)
  Sender: FDA-Public Use
  Company Number: 2005FR-00164

PATIENT
  Age: 9 Year
  Sex: Male
  Weight: 30 kg

DRUGS (1)
  1. BRUFEN (IBUPROFEN) [Suspect]
     Indication: PROCEDURAL PAIN
     Dosage: 300MG ORAL
     Route: 048

REACTIONS (1)
  - ASTHMA [None]
